FAERS Safety Report 15698931 (Version 4)
Quarter: 2020Q1

REPORT INFORMATION
  Report Type: Other
  Country: US (occurrence: US)
  Receive Date: 20181207
  Receipt Date: 20200126
  Transmission Date: 20200409
  Serious: Yes (Hospitalization)
  Sender: FDA-Public Use
  Company Number: US-ACORDA-ACO_155788_2018

PATIENT
  Age: 69 Year
  Sex: Female

DRUGS (3)
  1. AMPYRA [Suspect]
     Active Substance: DALFAMPRIDINE
     Indication: COGNITIVE DISORDER
     Dosage: 10 MILLIGRAM, QD
     Route: 048
     Dates: end: 20181101
  2. AMPYRA [Suspect]
     Active Substance: DALFAMPRIDINE
     Indication: ASTHENIA
  3. AMPYRA [Suspect]
     Active Substance: DALFAMPRIDINE
     Indication: GAIT DISTURBANCE
     Dosage: 10 MILLIGRAM, BID
     Route: 048

REACTIONS (5)
  - Product use in unapproved indication [Unknown]
  - Depression [Unknown]
  - Drug ineffective for unapproved indication [Unknown]
  - Multiple sclerosis relapse [Recovered/Resolved]
  - Aggression [Recovered/Resolved]

NARRATIVE: CASE EVENT DATE: 20181020
